FAERS Safety Report 9809279 (Version 2)
Quarter: 2014Q1

REPORT INFORMATION
  Report Type: Report from Study
  Country: JP (occurrence: JP)
  Receive Date: 20140110
  Receipt Date: 20140110
  Transmission Date: 20141002
  Serious: Yes (Death, Other)
  Sender: FDA-Public Use
  Company Number: JP-009507513-2009SP004158

PATIENT
  Age: 65 Year
  Sex: Male
  Weight: 48 kg

DRUGS (30)
  1. TEMODAL [Suspect]
     Indication: MALIGNANT OLIGODENDROGLIOMA
     Dosage: 150 MG/M2, QD
     Route: 048
     Dates: start: 20061206, end: 20061210
  2. TEMODAL [Suspect]
     Dosage: 200 MG/M2, QD
     Route: 048
     Dates: start: 20070111, end: 20070115
  3. TEMODAL [Suspect]
     Dosage: 200 MG/M2, QD
     Route: 048
     Dates: start: 20070208, end: 20070212
  4. TEMODAL [Suspect]
     Dosage: 200 MG/M2, QD
     Route: 048
     Dates: start: 20070308, end: 20070312
  5. TEMODAL [Suspect]
     Dosage: 200 MG/M2, QD
     Route: 048
     Dates: start: 20070404, end: 20070408
  6. TEMODAL [Suspect]
     Dosage: 200 MG/M2, QD
     Route: 048
     Dates: start: 20070503, end: 20070507
  7. TEMODAL [Suspect]
     Dosage: 200 MG/M2, QD
     Route: 048
     Dates: start: 20070531, end: 20070606
  8. TEMODAL [Suspect]
     Dosage: 200 MG/M2, QD
     Route: 048
     Dates: start: 20070628, end: 20070702
  9. TEMODAL [Suspect]
     Dosage: 200 MG/M2, QD
     Route: 048
     Dates: start: 20070823, end: 20070827
  10. TEMODAL [Suspect]
     Dosage: 200 MG/M2, QD
     Route: 048
     Dates: start: 20070920, end: 20070924
  11. TEMODAL [Suspect]
     Dosage: 200 MG/M2, QD
     Route: 048
     Dates: start: 20071018, end: 20071022
  12. TEMODAL [Suspect]
     Dosage: 200 MG/M2, QD
     Route: 048
     Dates: start: 20071115, end: 20071119
  13. TEMODAL [Suspect]
     Dosage: 200 MG/M2, QD
     Route: 048
     Dates: start: 20071213, end: 20071217
  14. TEMODAL [Suspect]
     Dosage: 200 MG/M2, QD
     Route: 048
     Dates: start: 20080110, end: 20080114
  15. TEMODAL [Suspect]
     Dosage: 200 MG/M2, QD
     Route: 048
     Dates: start: 20080207, end: 20080211
  16. TEMODAL [Suspect]
     Dosage: 200 MG/M2, QD
     Route: 048
     Dates: start: 20080626, end: 20080630
  17. TEMODAL [Suspect]
     Dosage: 200 MG/M2, QD
     Route: 048
     Dates: start: 20080724, end: 20080728
  18. TEMODAL [Suspect]
     Dosage: 200 MG/M2, QD
     Route: 048
     Dates: start: 20080821, end: 20080825
  19. TEMODAL [Suspect]
     Dosage: 200 MG/M2, QD
     Route: 048
     Dates: start: 20080918, end: 20080922
  20. TEMODAL [Suspect]
     Dosage: 200 MG/M2, QD
     Route: 048
     Dates: start: 20081016, end: 20081020
  21. PREDNISOLONE [Suspect]
     Dosage: UNK
     Route: 048
     Dates: end: 20081215
  22. NAVOBAN [Concomitant]
     Indication: PROPHYLAXIS
     Dosage: UNK
     Route: 048
     Dates: start: 20061206, end: 20081215
  23. MAGNESIUM OXIDE [Concomitant]
     Indication: PROPHYLAXIS
     Dosage: UNK
     Route: 048
     Dates: start: 20061209, end: 20080112
  24. PROCTOSEDYL (DIBUCAINE HYDROCHLORIDE (+) FRAMYCETIN SULFATE (+) HYDROC [Concomitant]
     Dosage: UNK
     Route: 048
     Dates: start: 20061209, end: 20081215
  25. CRAVIT [Concomitant]
     Dosage: UNK
     Route: 031
     Dates: start: 20061209, end: 20080104
  26. LAXOBERON [Concomitant]
     Indication: PROPHYLAXIS
     Dosage: UNK
     Route: 048
     Dates: start: 20061210, end: 20080102
  27. METHYCOBAL [Concomitant]
     Dosage: UNK
     Route: 048
     Dates: end: 20081218
  28. PHENOBARBITAL (+) PHENYTOIN [Concomitant]
     Dosage: UNK
     Route: 048
     Dates: end: 20090206
  29. OMEPRAZON [Concomitant]
     Dosage: UNK
     Route: 048
     Dates: end: 20081215
  30. ANPLAG [Concomitant]
     Dosage: UNK
     Route: 048
     Dates: end: 20081215

REACTIONS (8)
  - Disease progression [Fatal]
  - Bone marrow failure [Not Recovered/Not Resolved]
  - Hypoalbuminaemia [Not Recovered/Not Resolved]
  - Hepatic function abnormal [Recovered/Resolved]
  - Renal impairment [Not Recovered/Not Resolved]
  - Hyperglycaemia [Not Recovered/Not Resolved]
  - Dental caries [Recovered/Resolved]
  - Bronchitis [Recovered/Resolved]
